FAERS Safety Report 11513990 (Version 1)
Quarter: 2015Q3

REPORT INFORMATION
  Report Type: Spontaneous
  Country: FR (occurrence: FR)
  Receive Date: 20150916
  Receipt Date: 20150916
  Transmission Date: 20151125
  Serious: Yes (Hospitalization)
  Sender: FDA-Public Use
  Company Number: FR-ELI_LILLY_AND_COMPANY-FR201509001156

PATIENT
  Age: 65 Year
  Sex: Female

DRUGS (30)
  1. METHYLPREDNISOLON                  /00049601/ [Suspect]
     Active Substance: METHYLPREDNISOLONE
     Dosage: 80 MG, SINGLE
     Route: 042
     Dates: start: 20150603, end: 20150603
  2. ARANESP [Suspect]
     Active Substance: DARBEPOETIN ALFA
     Dosage: 150 UG, SINGLE
     Route: 065
     Dates: start: 20150803, end: 20150803
  3. METHYLPREDNISOLON                  /00049601/ [Suspect]
     Active Substance: METHYLPREDNISOLONE
     Dosage: 80 MG, SINGLE
     Route: 042
     Dates: start: 20150729, end: 20150729
  4. PLITICAN [Suspect]
     Active Substance: ALIZAPRIDE HYDROCHLORIDE
     Indication: PROPHYLAXIS OF NAUSEA AND VOMITING
     Dosage: 100 MG, SINGLE
     Route: 042
     Dates: start: 20150527, end: 20150527
  5. LASILIX                            /00032601/ [Suspect]
     Active Substance: FUROSEMIDE
     Indication: PRODUCT USED FOR UNKNOWN INDICATION
     Dosage: 40 MG, QD
     Route: 048
     Dates: start: 20150708
  6. LYRICA [Suspect]
     Active Substance: PREGABALIN
     Indication: PRODUCT USED FOR UNKNOWN INDICATION
     Dosage: 25 MG, BID
     Route: 048
     Dates: start: 20150520, end: 20150810
  7. METHYLPREDNISOLON                  /00049601/ [Suspect]
     Active Substance: METHYLPREDNISOLONE
     Indication: LEIOMYOSARCOMA RECURRENT
     Dosage: 80 MG, SINGLE
     Route: 042
     Dates: start: 20150527, end: 20150527
  8. PLITICAN [Suspect]
     Active Substance: ALIZAPRIDE HYDROCHLORIDE
     Dosage: 100 MG, SINGLE
     Route: 042
     Dates: start: 20150603, end: 20150603
  9. GEMZAR [Suspect]
     Active Substance: GEMCITABINE HYDROCHLORIDE
     Indication: LEIOMYOSARCOMA RECURRENT
     Dosage: 1596 MG, CYCLICAL
     Route: 042
     Dates: start: 20150527, end: 20150603
  10. OMEPRAZOLE. [Suspect]
     Active Substance: OMEPRAZOLE
     Indication: PRODUCT USED FOR UNKNOWN INDICATION
     Dosage: 40 MG, QD
     Route: 048
     Dates: start: 20150520, end: 20150821
  11. ARANESP [Suspect]
     Active Substance: DARBEPOETIN ALFA
     Dosage: 150 UG, SINGLE
     Route: 065
     Dates: start: 20150702, end: 20150702
  12. METHYLPREDNISOLON                  /00049601/ [Suspect]
     Active Substance: METHYLPREDNISOLONE
     Dosage: 80 MG, SINGLE
     Route: 042
     Dates: start: 20150624, end: 20150624
  13. METHYLPREDNISOLON                  /00049601/ [Suspect]
     Active Substance: METHYLPREDNISOLONE
     Dosage: 80 MG, SINGLE
     Route: 042
     Dates: start: 20150715, end: 20150715
  14. PLITICAN [Suspect]
     Active Substance: ALIZAPRIDE HYDROCHLORIDE
     Dosage: 100 MG, SINGLE
     Route: 042
     Dates: start: 20150624, end: 20150624
  15. PLITICAN [Suspect]
     Active Substance: ALIZAPRIDE HYDROCHLORIDE
     Dosage: 100 MG, SINGLE
     Route: 042
     Dates: start: 20150708, end: 20150708
  16. VIALEBEX [Suspect]
     Active Substance: ALBUMIN (HUMAN)
     Indication: PRODUCT USED FOR UNKNOWN INDICATION
     Dosage: 20 G, SINGLE
     Route: 042
     Dates: start: 20150721, end: 20150721
  17. SOLUPRED                           /00016201/ [Suspect]
     Active Substance: PREDNISOLONE
     Indication: PRODUCT USED FOR UNKNOWN INDICATION
     Dosage: 40 MG, QD
     Route: 048
     Dates: start: 20150520, end: 20150822
  18. TOPALGIC                           /00599202/ [Suspect]
     Active Substance: TRAMADOL
     Indication: PRODUCT USED FOR UNKNOWN INDICATION
     Dosage: 150 MG, BID
     Route: 048
     Dates: start: 20150520, end: 20150822
  19. ARANESP [Suspect]
     Active Substance: DARBEPOETIN ALFA
     Indication: ANAEMIA
     Dosage: 150 UG, SINGLE
     Route: 065
     Dates: start: 20150527, end: 20150527
  20. VIALEBEX [Suspect]
     Active Substance: ALBUMIN (HUMAN)
     Dosage: 20 MG, SINGLE
     Route: 042
     Dates: start: 20150813, end: 20150813
  21. METHYLPREDNISOLON                  /00049601/ [Suspect]
     Active Substance: METHYLPREDNISOLONE
     Dosage: 80 MG, SINGLE
     Route: 042
     Dates: start: 20150708, end: 20150708
  22. PLITICAN [Suspect]
     Active Substance: ALIZAPRIDE HYDROCHLORIDE
     Dosage: 100 MG, SINGLE
     Route: 042
     Dates: start: 20150729, end: 20150729
  23. VIALEBEX [Suspect]
     Active Substance: ALBUMIN (HUMAN)
     Dosage: 20 MG, SINGLE
     Route: 042
     Dates: start: 20150813
  24. ARANESP [Suspect]
     Active Substance: DARBEPOETIN ALFA
     Dosage: 150 UG, SINGLE
     Route: 065
     Dates: start: 20150721, end: 20150721
  25. METHYLPREDNISOLON                  /00049601/ [Suspect]
     Active Substance: METHYLPREDNISOLONE
     Dosage: 80 MG, SINGLE
     Route: 042
     Dates: start: 20150617, end: 20150617
  26. GEMZAR [Suspect]
     Active Substance: GEMCITABINE HYDROCHLORIDE
     Dosage: 1558 MG, CYCLICAL
     Route: 042
     Dates: start: 20150617, end: 20150729
  27. LAROXYL [Suspect]
     Active Substance: AMITRIPTYLINE
     Indication: PRODUCT USED FOR UNKNOWN INDICATION
     Dosage: UNK, UNKNOWN
     Route: 065
     Dates: start: 20150527, end: 20150708
  28. ARANESP [Suspect]
     Active Substance: DARBEPOETIN ALFA
     Dosage: 150 UG, SINGLE
     Route: 065
     Dates: start: 20150708, end: 20150708
  29. ARANESP [Suspect]
     Active Substance: DARBEPOETIN ALFA
     Dosage: 150 UG, SINGLE
     Route: 065
     Dates: start: 20150810, end: 20150810
  30. PRIMPERAN [Suspect]
     Active Substance: METOCLOPRAMIDE HYDROCHLORIDE
     Indication: PROPHYLAXIS OF NAUSEA AND VOMITING
     Dosage: 10 MG, OTHER
     Route: 048
     Dates: start: 20150617, end: 20150715

REACTIONS (5)
  - Renal impairment [Unknown]
  - Toxic epidermal necrolysis [Unknown]
  - Cholestasis [Unknown]
  - Thrombocytopenia [Unknown]
  - Coagulopathy [Unknown]

NARRATIVE: CASE EVENT DATE: 20150801
